FAERS Safety Report 21271837 (Version 1)
Quarter: 2022Q3

REPORT INFORMATION
  Report Type: Spontaneous
  Country: US (occurrence: US)
  Receive Date: 20220830
  Receipt Date: 20220830
  Transmission Date: 20221027
  Serious: Yes (Other)
  Sender: FDA-Public Use
  Company Number: US-ABBVIE-22K-163-4516434-00

PATIENT
  Age: 64 Year
  Sex: Female
  Weight: 63.560 kg

DRUGS (18)
  1. HUMIRA [Suspect]
     Active Substance: ADALIMUMAB
     Indication: Crohn^s disease
     Route: 058
     Dates: start: 2016
  2. HUMIRA [Suspect]
     Active Substance: ADALIMUMAB
     Indication: Colitis ulcerative
  3. MAG GLYCINATE [Concomitant]
     Indication: Pain in extremity
  4. FISH OIL [Concomitant]
     Active Substance: FISH OIL
     Indication: Supplementation therapy
  5. CALCIUM [Concomitant]
     Active Substance: CALCIUM
     Indication: Bone disorder
  6. CALCIUM [Concomitant]
     Active Substance: CALCIUM
     Indication: Mineral supplementation
  7. PROBIOTICS NOS [Concomitant]
     Active Substance: PROBIOTICS NOS
     Indication: Gastrointestinal disorder therapy
     Dosage: ULTRA FLORA BALANCE
  8. PEPCID AC [Concomitant]
     Active Substance: FAMOTIDINE
     Indication: Hyperchlorhydria
  9. ZETIA [Concomitant]
     Active Substance: EZETIMIBE
     Indication: Blood cholesterol increased
  10. METOPROLOL [Concomitant]
     Active Substance: METOPROLOL
     Indication: Hypertension
  11. LOSARTAN [Concomitant]
     Active Substance: LOSARTAN
     Indication: Hypertension
  12. DOMPERIDONE [Concomitant]
     Active Substance: DOMPERIDONE
     Indication: Gastrooesophageal reflux disease
  13. LUNESTA [Concomitant]
     Active Substance: ESZOPICLONE
     Indication: Sleep disorder therapy
  14. UBRELVY [Concomitant]
     Active Substance: UBROGEPANT
     Indication: Migraine
  15. PFIZER-BIONTECH COVID-19 VACCINE [Concomitant]
     Active Substance: TOZINAMERAN
     Indication: COVID-19 immunisation
     Route: 030
     Dates: start: 20210312, end: 20210312
  16. PFIZER-BIONTECH COVID-19 VACCINE [Concomitant]
     Active Substance: TOZINAMERAN
     Route: 030
     Dates: start: 20210402, end: 20210402
  17. MODERNA COVID-19 VACCINE [Concomitant]
     Active Substance: ELASOMERAN
     Indication: COVID-19 immunisation
     Route: 030
     Dates: start: 20211028, end: 20211028
  18. MODERNA COVID-19 VACCINE [Concomitant]
     Active Substance: ELASOMERAN
     Route: 030
     Dates: start: 20220606, end: 20220606

REACTIONS (6)
  - Dental implantation [Recovered/Resolved]
  - Dental implantation [Recovered/Resolved]
  - Tooth extraction [Not Recovered/Not Resolved]
  - Dental restoration failure [Not Recovered/Not Resolved]
  - Dental restoration failure [Recovered/Resolved]
  - Impaired healing [Unknown]

NARRATIVE: CASE EVENT DATE: 20220509
